FAERS Safety Report 15569340 (Version 1)
Quarter: 2018Q4

REPORT INFORMATION
  Report Type: Spontaneous
  Country: US (occurrence: US)
  Receive Date: 20181031
  Receipt Date: 20181031
  Transmission Date: 20190205
  Serious: No
  Sender: FDA-Public Use
  Company Number: US-BAYER-2018-202301

PATIENT
  Sex: Male

DRUGS (1)
  1. MIRALAX [Suspect]
     Active Substance: POLYETHYLENE GLYCOL 3350
     Dosage: ^I MIXED MY FIRST DAY^S DOSE IN 16 OUNCES OF BEVERAGE
     Route: 065

REACTIONS (1)
  - Wrong technique in product usage process [Unknown]
